FAERS Safety Report 9797237 (Version 1)
Quarter: 2014Q1

REPORT INFORMATION
  Report Type: Report from Study
  Country: US (occurrence: US)
  Receive Date: 20140106
  Receipt Date: 20140106
  Transmission Date: 20141002
  Serious: Yes (Other)
  Sender: FDA-Public Use
  Company Number: US-ROCHE-1314844

PATIENT
  Sex: Male
  Weight: 70.37 kg

DRUGS (13)
  1. LUCENTIS [Suspect]
     Indication: AGE-RELATED MACULAR DEGENERATION
     Route: 050
     Dates: start: 20060927
  2. AVASTIN [Suspect]
     Indication: AGE-RELATED MACULAR DEGENERATION
     Route: 065
     Dates: start: 20060601
  3. AMIODARONE HYDROCHLORIDE [Concomitant]
  4. ASPIRIN [Concomitant]
     Dosage: 81 MG
     Route: 065
  5. FISH OIL [Concomitant]
  6. FLECAINIDE ACETATE [Concomitant]
  7. HYZAAR (UNITED STATES) [Concomitant]
  8. WARFARIN SODIUM [Concomitant]
  9. OCUFLOX [Concomitant]
     Dosage: 1 DROP OD FOR 4 DAYS
     Route: 065
     Dates: start: 20101015, end: 20110105
  10. ZYMAR [Concomitant]
     Dosage: 1 DROP OD X 4 DAYS
     Route: 065
     Dates: start: 20060707, end: 20110105
  11. PHENYLEPHRINE [Concomitant]
     Route: 065
  12. TROPICAMIDE [Concomitant]
     Dosage: OU BOTH EYES
     Route: 065
  13. PROPARACAINE [Concomitant]
     Dosage: OU:  BOTH EYES
     Route: 065

REACTIONS (8)
  - Cystoid macular oedema [Recovered/Resolved]
  - Deafness [Unknown]
  - Pollakiuria [Unknown]
  - Vitreous haemorrhage [Unknown]
  - Dry eye [Unknown]
  - Haematuria [Unknown]
  - Oedema [Unknown]
  - Mood altered [Unknown]
